FAERS Safety Report 9820581 (Version 1)
Quarter: 2014Q1

REPORT INFORMATION
  Report Type: Report from Study
  Country: DE (occurrence: DE)
  Receive Date: 20140116
  Receipt Date: 20140116
  Transmission Date: 20141002
  Serious: Yes (Other)
  Sender: FDA-Public Use
  Company Number: DE-ABBVIE-14P-062-1187861-00

PATIENT
  Sex: Male
  Weight: 117 kg

DRUGS (6)
  1. ZEMPLAR [Suspect]
     Indication: PRODUCT USED FOR UNKNOWN INDICATION
     Dosage: 7 MICROGRAM PER WEEK
     Route: 042
     Dates: start: 20120323
  2. ASPIRINE [Concomitant]
     Indication: PRODUCT USED FOR UNKNOWN INDICATION
  3. BISOPROLOL [Concomitant]
     Indication: PRODUCT USED FOR UNKNOWN INDICATION
  4. PANTOPRAZOL [Concomitant]
     Indication: PRODUCT USED FOR UNKNOWN INDICATION
  5. TORASEMID [Concomitant]
     Indication: PRODUCT USED FOR UNKNOWN INDICATION
  6. DEKRISTOL [Concomitant]
     Indication: PRODUCT USED FOR UNKNOWN INDICATION

REACTIONS (6)
  - Renal failure acute [Recovered/Resolved]
  - Cardiac failure chronic [Recovered/Resolved]
  - Hyperkalaemia [Recovered/Resolved]
  - Musculoskeletal pain [Not Recovered/Not Resolved]
  - Spinal column stenosis [Unknown]
  - Arthralgia [Not Recovered/Not Resolved]
